FAERS Safety Report 4831783-4 (Version None)
Quarter: 2005Q4

REPORT INFORMATION
  Report Type: 
  Country: None (occurrence: None)
  Receive Date: 20051118
  Receipt Date: 20051107
  Transmission Date: 20060501
  Serious: Yes (Hospitalization)
  Sender: FDA-Public Use
  Company Number: US-MERCK-0511USA01485

PATIENT
  Age: 57 Year
  Sex: Male

DRUGS (2)
  1. VIOXX [Suspect]
     Indication: PAIN
     Route: 048
     Dates: start: 20030412, end: 20030412
  2. VIOXX [Suspect]
     Route: 048
     Dates: start: 20030413

REACTIONS (9)
  - ANGINA UNSTABLE [None]
  - ARTHROPATHY [None]
  - BLOOD PRESSURE INCREASED [None]
  - CELLULITIS [None]
  - DRUG INEFFECTIVE [None]
  - DYSPNOEA [None]
  - MITRAL VALVE INCOMPETENCE [None]
  - OEDEMA PERIPHERAL [None]
  - TRICUSPID VALVE INCOMPETENCE [None]
